FAERS Safety Report 6391066-0 (Version None)
Quarter: 2009Q4

REPORT INFORMATION
  Report Type: 
  Country: None (occurrence: None)
  Receive Date: 20091006
  Receipt Date: 20091006
  Transmission Date: 20100525
  Serious: No
  Sender: FDA-Public Use
  Company Number: None

PATIENT

DRUGS (1)
  1. RENOVA [Suspect]

REACTIONS (2)
  - EYELID OEDEMA [None]
  - PARAESTHESIA ORAL [None]
